FAERS Safety Report 8907544 (Version 1)
Quarter: 2012Q4

REPORT INFORMATION
  Report Type: 
  Country: US (occurrence: US)
  Receive Date: 20121114
  Receipt Date: 20121114
  Transmission Date: 20130627
  Serious: No
  Sender: FDA-Public Use
  Company Number: US-ABBOTT-12P-163-0899147-00

PATIENT
  Sex: Male
  Weight: 120.31 kg

DRUGS (16)
  1. TRICOR [Suspect]
     Indication: BLOOD CHOLESTEROL INCREASED
     Dates: start: 201111, end: 201112
  2. CRESTOR [Suspect]
     Indication: BLOOD CHOLESTEROL INCREASED
     Dates: start: 201112, end: 201201
  3. LOVAZA [Concomitant]
     Indication: BLOOD CHOLESTEROL INCREASED
  4. ASPIRIN [Concomitant]
     Indication: PRODUCT USED FOR UNKNOWN INDICATION
  5. HUMULIN U [Concomitant]
     Indication: TYPE 2 DIABETES MELLITUS
  6. POTASSIUM CHLORIDE [Concomitant]
     Indication: PRODUCT USED FOR UNKNOWN INDICATION
  7. FUROSEMIDE [Concomitant]
     Indication: OEDEMA
  8. MYCARDIS HCT [Concomitant]
     Indication: HYPERTENSION
     Dosage: 80/20mg
  9. PREVACID [Concomitant]
     Indication: ANTACID THERAPY
  10. CARDURA [Concomitant]
     Indication: HYPERTENSION
  11. CIMETIDINE [Concomitant]
     Indication: SKIN PAPILLOMA
  12. NIACIN [Concomitant]
     Indication: BLOOD CHOLESTEROL INCREASED
  13. CRANBERRY [Concomitant]
     Indication: SUPPLEMENTATION THERAPY
     Dosage: Supplement
  14. FLAXSEED OIL [Concomitant]
     Indication: PRODUCT USED FOR UNKNOWN INDICATION
  15. CO-ENZYME Q10 [Concomitant]
     Indication: PRODUCT USED FOR UNKNOWN INDICATION
  16. MILK THISTLE [Concomitant]
     Indication: PRODUCT USED FOR UNKNOWN INDICATION

REACTIONS (7)
  - Renal impairment [Not Recovered/Not Resolved]
  - Platelet count decreased [Not Recovered/Not Resolved]
  - Asthenia [Not Recovered/Not Resolved]
  - Cough [Not Recovered/Not Resolved]
  - Dyspnoea [Recovered/Resolved]
  - Epistaxis [Not Recovered/Not Resolved]
  - Urticaria [Recovered/Resolved]
